FAERS Safety Report 7451888-1 (Version None)
Quarter: 2011Q2

REPORT INFORMATION
  Report Type: 
  Country: None (occurrence: None)
  Receive Date: 20110502
  Receipt Date: 20110426
  Transmission Date: 20111010
  Serious: Yes (Death)
  Sender: FDA-Public Use
  Company Number: FR-SANOFI-AVENTIS-2011SA025386

PATIENT
  Age: 67 Year
  Sex: Female

DRUGS (3)
  1. AMLODIPINE BESYLATE [Concomitant]
     Indication: HYPERTENSION
  2. EPIRUBICINE [Suspect]
     Indication: BREAST CANCER
     Dates: end: 20100722
  3. TAXOTERE [Suspect]
     Indication: BREAST CANCER
     Dates: end: 20100722

REACTIONS (9)
  - COAGULOPATHY [None]
  - SEPTIC SHOCK [None]
  - DIARRHOEA [None]
  - VOMITING [None]
  - PYREXIA [None]
  - PANCYTOPENIA [None]
  - GASTROINTESTINAL DISORDER [None]
  - GENERAL PHYSICAL HEALTH DETERIORATION [None]
  - CONSTIPATION [None]
